FAERS Safety Report 8398973-8 (Version None)
Quarter: 2012Q2

REPORT INFORMATION
  Report Type: 
  Country: None (occurrence: None)
  Receive Date: 20120531
  Receipt Date: 20120516
  Transmission Date: 20120825
  Serious: Yes (Hospitalization, Other)
  Sender: FDA-Public Use
  Company Number: JP-JNJFOC-20120516384

PATIENT
  Age: 32 Year
  Sex: Female

DRUGS (3)
  1. RISPERDAL [Suspect]
     Indication: PRODUCT USED FOR UNKNOWN INDICATION
     Route: 048
  2. ANTICONVULSANT [Suspect]
     Route: 065
  3. ANTICONVULSANT [Suspect]
     Indication: EPILEPSY
     Route: 065

REACTIONS (3)
  - AEROPHAGIA [None]
  - ABDOMINAL DISTENSION [None]
  - ILEUS [None]
